FAERS Safety Report 9579400 (Version 1)
Quarter: 2013Q4

REPORT INFORMATION
  Report Type: Spontaneous
  Country: US (occurrence: US)
  Receive Date: 20131001
  Receipt Date: 20131001
  Transmission Date: 20140711
  Serious: No
  Sender: FDA-Public Use
  Company Number: US-AMGEN-USASP2013017755

PATIENT
  Age: 45 Year
  Sex: Female

DRUGS (9)
  1. ENBREL [Suspect]
     Indication: RHEUMATOID ARTHRITIS
     Dosage: 50 MG, QWK
     Route: 058
  2. CALCIUM [Concomitant]
     Dosage: 500 UNK, UNK
  3. METHOTREXATE [Concomitant]
     Dosage: 2.5 MG, UNK
  4. FOLIC ACID [Concomitant]
     Dosage: UNK
  5. CELEBREX [Concomitant]
     Dosage: 100 MG, UNK
  6. PRILOSEC                           /00661201/ [Concomitant]
     Dosage: 10 MG, UNK
  7. NEURONTIN [Concomitant]
     Dosage: 100 MG, UNK
  8. LISINOPRIL [Concomitant]
     Dosage: 10 MG, UNK
  9. LORTAB                             /00607101/ [Concomitant]
     Dosage: 5 UNK, UNK

REACTIONS (6)
  - Arthralgia [Unknown]
  - Drug ineffective [Unknown]
  - Joint swelling [Unknown]
  - Gait disturbance [Unknown]
  - Arthropathy [Unknown]
  - Limb discomfort [Unknown]
